FAERS Safety Report 7443250-2 (Version None)
Quarter: 2011Q2

REPORT INFORMATION
  Report Type: 
  Country: None (occurrence: None)
  Receive Date: 20110428
  Receipt Date: 20110419
  Transmission Date: 20111010
  Serious: Yes (Other)
  Sender: FDA-Public Use
  Company Number: B0715405A

PATIENT
  Age: 9 Year
  Sex: Male
  Weight: 70 kg

DRUGS (4)
  1. SERETIDE [Suspect]
     Indication: MYCOPLASMA INFECTION
     Dosage: 2PUFF PER DAY
     Route: 055
     Dates: start: 20060501, end: 20070101
  2. SERETIDE [Suspect]
     Dosage: 2PUFF PER DAY
     Route: 055
     Dates: start: 20071001, end: 20100501
  3. SERETIDE [Suspect]
     Dosage: 2PUFF PER DAY
     Route: 055
     Dates: start: 20100801
  4. SYMBICORT [Concomitant]
     Indication: MYCOPLASMA INFECTION
     Route: 055
     Dates: start: 20100501, end: 20100801

REACTIONS (5)
  - OSTEONECROSIS [None]
  - PAIN IN EXTREMITY [None]
  - JOINT RANGE OF MOTION DECREASED [None]
  - ARTHRALGIA [None]
  - BONE DENSITY ABNORMAL [None]
